FAERS Safety Report 6613440-7 (Version None)
Quarter: 2010Q1

REPORT INFORMATION
  Report Type: 
  Country: None (occurrence: None)
  Receive Date: 20100224
  Receipt Date: 20091109
  Transmission Date: 20100710
  Serious: Yes (Hospitalization)
  Sender: FDA-Public Use
  Company Number: WAES 0911USA01629

PATIENT
  Age: 72 Year
  Sex: Female

DRUGS (1)
  1. ZOCOR [Suspect]
     Indication: BLOOD CHOLESTEROL
     Dosage: 40 MG/DAILY/PO
     Route: 048
     Dates: start: 20090301, end: 20090901

REACTIONS (1)
  - HYPERSENSITIVITY [None]
